FAERS Safety Report 9915458 (Version 1)
Quarter: 2014Q1

REPORT INFORMATION
  Report Type: Report from Study
  Country: US (occurrence: US)
  Receive Date: 20140221
  Receipt Date: 20140221
  Transmission Date: 20141002
  Serious: Yes (Death)
  Sender: FDA-Public Use
  Company Number: US-ROCHE-1329119

PATIENT
  Sex: Female
  Weight: 66.28 kg

DRUGS (19)
  1. AVASTIN [Suspect]
     Indication: BREAST CANCER
     Dosage: TOTAL 6 INFUSION
     Route: 065
     Dates: start: 20120215
  2. AVASTIN [Suspect]
     Indication: HEPATIC CANCER
     Route: 042
     Dates: start: 20120223
  3. AVASTIN [Suspect]
     Route: 042
     Dates: start: 20120306
  4. AVASTIN [Suspect]
     Route: 042
     Dates: start: 20120322
  5. AVASTIN [Suspect]
     Route: 042
     Dates: start: 20120411
  6. AVASTIN [Suspect]
     Route: 042
     Dates: start: 20120425
  7. AVASTIN [Suspect]
     Route: 042
     Dates: start: 20120509
  8. XELODA [Suspect]
     Indication: PRODUCT USED FOR UNKNOWN INDICATION
     Dosage: 7 DAYS ON, 7 DAYS OFF, REGIMEN FOR TOTAL 6 CYCLE.
     Route: 048
  9. RAPAMUNE [Concomitant]
     Route: 048
  10. SPRYCEL [Concomitant]
     Route: 048
  11. VOTRIENT [Concomitant]
     Route: 048
  12. LANTUS [Concomitant]
     Route: 042
  13. HUMALOG [Concomitant]
     Route: 065
  14. LORAZEPAM [Concomitant]
     Route: 048
  15. HYDROCODONE/ACETAMINOPHEN [Concomitant]
     Route: 065
  16. LEVOXYL [Concomitant]
     Route: 048
  17. BENADRYL (UNITED STATES) [Concomitant]
     Route: 065
  18. DEXAMETHASONE [Concomitant]
     Route: 065
  19. XGEVA [Concomitant]
     Route: 065

REACTIONS (2)
  - Death [Fatal]
  - Lung neoplasm [Unknown]
